FAERS Safety Report 18366712 (Version 1)
Quarter: 2020Q4

REPORT INFORMATION
  Report Type: Spontaneous
  Country: US (occurrence: US)
  Receive Date: 20201009
  Receipt Date: 20201009
  Transmission Date: 20210114
  Serious: No
  Sender: FDA-Public Use
  Company Number: US-009507513-2010USA002260

PATIENT
  Age: 53 Year
  Sex: Female

DRUGS (2)
  1. LENVATINIB MESYLATE [Suspect]
     Active Substance: LENVATINIB MESYLATE
     Indication: RENAL CANCER
     Dosage: 20 MILLIGRAM, QD
     Route: 048
  2. KEYTRUDA [Suspect]
     Active Substance: PEMBROLIZUMAB
     Indication: RENAL CANCER

REACTIONS (6)
  - Diarrhoea [Unknown]
  - Oral pain [Unknown]
  - Frequent bowel movements [Recovered/Resolved]
  - Glossodynia [Unknown]
  - Fatigue [Unknown]
  - Blood pressure increased [Recovering/Resolving]
